FAERS Safety Report 6644194-6 (Version None)
Quarter: 2010Q1

REPORT INFORMATION
  Report Type: 
  Country: None (occurrence: None)
  Receive Date: 20100322
  Receipt Date: 20100311
  Transmission Date: 20100710
  Serious: Yes (Hospitalization, Other)
  Sender: FDA-Public Use
  Company Number: JP-PFIZER INC-2010031758

PATIENT
  Age: 79 Year
  Sex: Female

DRUGS (3)
  1. AMLODIPINE BESYLATE [Suspect]
     Dosage: 100 MG, SINGLE
  2. CANDESARTAN [Suspect]
     Dosage: 80 MG, SINGLE
  3. ACETYLSALICYLIC ACID [Suspect]
     Dosage: 2 G, SINGLE

REACTIONS (4)
  - HYPOKALAEMIA [None]
  - HYPOTENSION [None]
  - INTENTIONAL OVERDOSE [None]
  - SUICIDE ATTEMPT [None]
